FAERS Safety Report 7561249-2 (Version None)
Quarter: 2011Q2

REPORT INFORMATION
  Report Type: 
  Country: None (occurrence: None)
  Receive Date: 20110621
  Receipt Date: 20100611
  Transmission Date: 20111010
  Serious: No
  Sender: FDA-Public Use
  Company Number: US-ASTRAZENECA-2010SE22264

PATIENT
  Age: 16020 Day
  Sex: Female
  Weight: 52.6 kg

DRUGS (10)
  1. PULMICORT FLEXHALER [Suspect]
     Route: 055
     Dates: start: 20100518, end: 20100518
  2. PULMICORT FLEXHALER [Suspect]
     Route: 055
     Dates: start: 20100518, end: 20100518
  3. PULMICORT FLEXHALER [Suspect]
     Dosage: 90 MCG DAILY
     Route: 055
     Dates: start: 20100501
  4. PULMICORT FLEXHALER [Suspect]
     Indication: FEELING COLD
     Dosage: 360 MCG DAILY
     Route: 055
     Dates: start: 20100511, end: 20100511
  5. PULMICORT FLEXHALER [Suspect]
     Dosage: 90 MCG DAILY
     Route: 055
     Dates: start: 20100501
  6. SYMBICORT [Suspect]
     Indication: BRONCHITIS
     Dosage: 160 MCG DAILY
     Route: 055
     Dates: start: 20100501
  7. PULMICORT FLEXHALER [Suspect]
     Dosage: 90 MCG DAILY
     Route: 055
     Dates: start: 20100501
  8. PULMICORT FLEXHALER [Suspect]
     Indication: BRONCHITIS
     Dosage: 360 MCG DAILY
     Route: 055
     Dates: start: 20100511, end: 20100511
  9. PULMICORT FLEXHALER [Suspect]
     Route: 055
     Dates: start: 20100518, end: 20100518
  10. PULMICORT FLEXHALER [Suspect]
     Indication: INFLUENZA
     Dosage: 360 MCG DAILY
     Route: 055
     Dates: start: 20100511, end: 20100511

REACTIONS (3)
  - ANXIETY [None]
  - CHEST PAIN [None]
  - CHEST DISCOMFORT [None]
